FAERS Safety Report 15699370 (Version 2)
Quarter: 2019Q1

REPORT INFORMATION
  Report Type: Spontaneous
  Country: PL (occurrence: PL)
  Receive Date: 20181207
  Receipt Date: 20190110
  Transmission Date: 20190417
  Serious: Yes (Death, Hospitalization)
  Sender: FDA-Public Use
  Company Number: PL-TEVA-2018-PL-982784

PATIENT
  Sex: Male

DRUGS (9)
  1. SOLU-MEDROL [Suspect]
     Active Substance: METHYLPREDNISOLONE SODIUM SUCCINATE
     Indication: CHRONIC GRANULOMATOUS DISEASE
     Route: 065
  2. VFEND [Suspect]
     Active Substance: VORICONAZOLE
     Indication: ANTIFUNGAL PROPHYLAXIS
     Dosage: 2X3 MG/KG
     Route: 048
  3. AMBISOME [Concomitant]
     Active Substance: AMPHOTERICIN B
     Dosage: 1X3 MG/KG
     Route: 042
  4. BUSILVEX [Suspect]
     Active Substance: BUSULFAN
     Dosage: 4X4X1.0 MG/KG
     Route: 042
  5. CAMPATH [Suspect]
     Active Substance: ALEMTUZUMAB
     Indication: PROPHYLAXIS AGAINST GRAFT VERSUS HOST DISEASE
     Dosage: 3X 0.2 MG/KG
     Route: 065
  6. VFEND [Suspect]
     Active Substance: VORICONAZOLE
     Indication: ANTIFUNGAL PROPHYLAXIS
     Dosage: THE DOSE WAS DOUBLED TO 2X6 MG/KG
     Route: 048
  7. FLUDARABINE [Suspect]
     Active Substance: FLUDARABINE PHOSPHATE
     Dosage: 4X40 MG/M2
     Route: 042
  8. VORICONAZOLE. [Suspect]
     Active Substance: VORICONAZOLE
     Indication: PARONYCHIA
     Dosage: STARTED ON DAY 8
     Route: 042
  9. FUNGIZONE [Concomitant]
     Active Substance: AMPHOTERICIN B
     Dosage: 4X12 MG/KG
     Route: 048

REACTIONS (12)
  - Neurological decompensation [Fatal]
  - Altered state of consciousness [Unknown]
  - Hypertensive crisis [Unknown]
  - Loss of consciousness [Unknown]
  - Hydrocephalus [Unknown]
  - Cerebral disorder [Unknown]
  - Cerebral aspergillosis [Fatal]
  - Paronychia [Unknown]
  - Drug ineffective [Unknown]
  - Epilepsy [Unknown]
  - Hemiplegia [Unknown]
  - Hypertension [Unknown]

NARRATIVE: CASE EVENT DATE: 20110705
